FAERS Safety Report 17460889 (Version 1)
Quarter: 2020Q1

REPORT INFORMATION
  Report Type: Spontaneous
  Country: US (occurrence: US)
  Receive Date: 20200226
  Receipt Date: 20200226
  Transmission Date: 20200409
  Serious: No
  Sender: FDA-Public Use
  Company Number: None

PATIENT
  Age: 7 Year
  Sex: Female

DRUGS (1)
  1. TAMIFLU [Suspect]
     Active Substance: OSELTAMIVIR PHOSPHATE
     Indication: INFLUENZA
     Dosage: ?          QUANTITY:1 1;?
     Route: 048
     Dates: start: 20200131, end: 20200131

REACTIONS (6)
  - Vomiting [None]
  - Feeling abnormal [None]
  - Nausea [None]
  - Nightmare [None]
  - Malaise [None]
  - Influenza [None]

NARRATIVE: CASE EVENT DATE: 20200131
